FAERS Safety Report 9213696 (Version 1)
Quarter: 2013Q2

REPORT INFORMATION
  Report Type: Report from Study
  Country: US (occurrence: US)
  Receive Date: 20130405
  Receipt Date: 20130405
  Transmission Date: 20140414
  Serious: No
  Sender: FDA-Public Use
  Company Number: US-VERTEX PHARMACEUTICALS INC.-2013-004506

PATIENT
  Age: 61 Year
  Sex: Female

DRUGS (8)
  1. VX-950 (TELAPREVIR) [Suspect]
     Indication: HEPATITIS C
     Dosage: 750 MG, TID
     Route: 048
  2. PEGASYS [Suspect]
     Indication: HEPATITIS C
  3. RIBAPAK [Suspect]
     Indication: HEPATITIS C
     Dosage: 1200 UNK, QD
  4. METOPROLOL TARTRATE [Concomitant]
     Dosage: 25 MG, UNK
  5. VALSARTAN/HYDROCHLOORTHIAZIDE [Concomitant]
     Dosage: 8 - 12.5
  6. ASA [Concomitant]
     Dosage: 81 MG, UNK
  7. FISH OIL [Concomitant]
  8. MULTIVITAMIN [Concomitant]

REACTIONS (3)
  - White blood cell count decreased [Unknown]
  - Rash pruritic [Unknown]
  - Skin exfoliation [Unknown]
